FAERS Safety Report 10247790 (Version 1)
Quarter: 2014Q2

REPORT INFORMATION
  Report Type: Spontaneous
  Country: US (occurrence: US)
  Receive Date: 20140619
  Receipt Date: 20140619
  Transmission Date: 20141212
  Serious: No
  Sender: FDA-Public Use
  Company Number: US-PFIZER INC-2014168598

PATIENT
  Age: 62 Year
  Sex: Female
  Weight: 108.84 kg

DRUGS (2)
  1. GABAPENTIN [Suspect]
     Indication: NEUROPATHY PERIPHERAL
     Dosage: 600 MG, UNK
  2. LANTUS [Concomitant]
     Dosage: UNK

REACTIONS (2)
  - Hypersomnia [Unknown]
  - Confusional state [Unknown]
